FAERS Safety Report 5799444-5 (Version None)
Quarter: 2008Q3

REPORT INFORMATION
  Report Type: 
  Country: None (occurrence: None)
  Receive Date: 20080703
  Receipt Date: 20080626
  Transmission Date: 20090109
  Serious: Yes (Life-Threatening)
  Sender: FDA-Public Use
  Company Number: IT-BRISTOL-MYERS SQUIBB COMPANY-14247811

PATIENT
  Age: 47 Year
  Sex: Male

DRUGS (7)
  1. GLUCOPHAGE [Suspect]
     Route: 048
     Dates: start: 20080605, end: 20080605
  2. CANRENONE [Concomitant]
  3. CARDICOR [Concomitant]
     Dosage: TABS
  4. RAMIPRIL [Concomitant]
     Dosage: TAB
  5. ZAROXOLYN [Concomitant]
     Dosage: TAB
  6. ASPIRIN [Concomitant]
     Dosage: TAB
  7. LASIX [Concomitant]
     Dosage: TAB

REACTIONS (2)
  - LEUKOPENIA [None]
  - NEUTROPENIA [None]
